FAERS Safety Report 7814577-7 (Version None)
Quarter: 2011Q4

REPORT INFORMATION
  Report Type: 
  Country: None (occurrence: None)
  Receive Date: 20111014
  Receipt Date: 20111010
  Transmission Date: 20120403
  Serious: Yes (Hospitalization)
  Sender: FDA-Public Use
  Company Number: PHHO2011IT11151

PATIENT
  Sex: Male
  Weight: 80 kg

DRUGS (6)
  1. EVEROLIMUS [Suspect]
     Indication: HEART TRANSPLANT
     Dosage: 0.5 MG, UNK
     Route: 048
     Dates: start: 20110418
  2. LESCOL [Suspect]
     Indication: HEART TRANSPLANT
     Dosage: 40 MG, UNK
     Route: 048
     Dates: start: 20110511
  3. VALCYTE [Concomitant]
     Indication: ANTIVIRAL PROPHYLAXIS
     Dosage: 900 MG
     Dates: start: 20110601
  4. BACTRIM [Concomitant]
     Indication: ANTIFUNGAL PROPHYLAXIS
     Dosage: 1 EQ, UNK
     Dates: start: 20110421
  5. CORTICOSTEROIDS [Suspect]
  6. NEORAL [Suspect]
     Indication: HEART TRANSPLANT
     Dosage: 200 MG
     Route: 048
     Dates: start: 20110418

REACTIONS (2)
  - INFECTION IN AN IMMUNOCOMPROMISED HOST [None]
  - ESCHERICHIA URINARY TRACT INFECTION [None]
